FAERS Safety Report 20639303 (Version 2)
Quarter: 2022Q1

REPORT INFORMATION
  Report Type: Spontaneous
  Country: IR (occurrence: IR)
  Receive Date: 20220326
  Receipt Date: 20220326
  Transmission Date: 20220423
  Serious: Yes (Death, Hospitalization, Other)
  Sender: FDA-Public Use
  Company Number: IR-LUPIN PHARMACEUTICALS INC.-2022-04115

PATIENT
  Sex: Male

DRUGS (7)
  1. RIFAMPIN [Suspect]
     Active Substance: RIFAMPIN
     Indication: Disseminated Bacillus Calmette-Guerin infection
     Dosage: UNK
     Route: 048
  2. ETHAMBUTOL [Suspect]
     Active Substance: ETHAMBUTOL HYDROCHLORIDE
     Indication: Disseminated Bacillus Calmette-Guerin infection
     Dosage: UNK
     Route: 048
  3. ISONIAZID [Suspect]
     Active Substance: ISONIAZID
     Indication: Disseminated Bacillus Calmette-Guerin infection
     Dosage: UNK
     Route: 048
  4. OFLOXACIN [Suspect]
     Active Substance: OFLOXACIN
     Indication: Disseminated Bacillus Calmette-Guerin infection
     Dosage: UNK
     Route: 048
  5. INTERFERON GAMMA [Suspect]
     Active Substance: INTERFERON GAMMA
     Indication: Disseminated Bacillus Calmette-Guerin infection
     Dosage: 50 MICROGRAM/SQ. METER, QOD
     Route: 048
  6. DAPSONE [Suspect]
     Active Substance: DAPSONE
     Indication: Disseminated Bacillus Calmette-Guerin infection
     Dosage: UNK
     Route: 048
  7. CYCLOSERINE [Suspect]
     Active Substance: CYCLOSERINE
     Indication: Disseminated Bacillus Calmette-Guerin infection
     Dosage: UNK
     Route: 048

REACTIONS (4)
  - Respiratory failure [Fatal]
  - Condition aggravated [Fatal]
  - Disseminated Bacillus Calmette-Guerin infection [Fatal]
  - Drug ineffective [Unknown]
